FAERS Safety Report 12317778 (Version 1)
Quarter: 2016Q2

REPORT INFORMATION
  Report Type: Spontaneous
  Country: US (occurrence: US)
  Receive Date: 20160429
  Receipt Date: 20160429
  Transmission Date: 20160815
  Serious: No
  Sender: FDA-Public Use
  Company Number: US-BAUSCH-BL-2015-023609

PATIENT
  Age: 68 Year
  Sex: Male
  Weight: 93.07 kg

DRUGS (4)
  1. ALREX [Suspect]
     Active Substance: LOTEPREDNOL ETABONATE
     Indication: DACRYOSTENOSIS ACQUIRED
     Dosage: FOR 3 DAYS IN LEFT EYE
     Route: 047
     Dates: start: 20151011
  2. OMEGA 3 [Suspect]
     Active Substance: OMEGA-3 FATTY ACIDS
     Indication: BLOOD CHOLESTEROL INCREASED
     Dosage: 1 GRAM TWICE DAILY
     Route: 048
     Dates: start: 2014
  3. ATORVASTATIN [Concomitant]
     Active Substance: ATORVASTATIN
     Indication: BLOOD CHOLESTEROL INCREASED
     Route: 048
  4. ALREX [Suspect]
     Active Substance: LOTEPREDNOL ETABONATE
     Dosage: FOR 3 DAYS IN LEFT EYE
     Route: 047
     Dates: start: 20151012, end: 20151013

REACTIONS (3)
  - Eye pruritus [Not Recovered/Not Resolved]
  - Lacrimation increased [Not Recovered/Not Resolved]
  - Ocular hyperaemia [Not Recovered/Not Resolved]

NARRATIVE: CASE EVENT DATE: 20151011
